FAERS Safety Report 10639655 (Version 4)
Quarter: 2015Q1

REPORT INFORMATION
  Report Type: Spontaneous
  Country: IT (occurrence: IT)
  Receive Date: 20141209
  Receipt Date: 20150220
  Transmission Date: 20150720
  Serious: Yes (Hospitalization)
  Sender: FDA-Public Use
  Company Number: IT-BIOGENIDEC-2014BI128902

PATIENT
  Age: 41 Year
  Sex: Male

DRUGS (3)
  1. SATIVEX [Concomitant]
     Active Substance: NABIXIMOLS
     Indication: MUSCLE SPASTICITY
     Dates: start: 20140718
  2. RIVOTRIL [Concomitant]
     Active Substance: CLONAZEPAM
     Indication: ANXIOLYTIC THERAPY
  3. TYSABRI [Suspect]
     Active Substance: NATALIZUMAB
     Indication: MULTIPLE SCLEROSIS
     Route: 042
     Dates: start: 20111124, end: 20140818

REACTIONS (4)
  - Drug hypersensitivity [Unknown]
  - Leukopenia [Recovered/Resolved]
  - Mean cell haemoglobin decreased [Recovered/Resolved]
  - Anaemia [Recovered/Resolved]

NARRATIVE: CASE EVENT DATE: 20141107
